FAERS Safety Report 8262764-9 (Version None)
Quarter: 2012Q2

REPORT INFORMATION
  Report Type: 
  Country: None (occurrence: None)
  Receive Date: 20120405
  Receipt Date: 20120330
  Transmission Date: 20120825
  Serious: No
  Sender: FDA-Public Use
  Company Number: US-BAYER-2012-033146

PATIENT

DRUGS (4)
  1. ANTIHYPERTENSIVES [Concomitant]
  2. IMPLANON [Concomitant]
  3. ALEVE (CAPLET) [Suspect]
     Route: 048
  4. DOXIL [DICLOXACILLIN SODIUM MONOHYDRATE] [Concomitant]

REACTIONS (3)
  - PALPITATIONS [None]
  - INSOMNIA [None]
  - TREMOR [None]
